FAERS Safety Report 8675873 (Version 2)
Quarter: 2013Q1

REPORT INFORMATION
  Report Type: Report from Study
  Country: DE (occurrence: DE)
  Receive Date: 20120720
  Receipt Date: 20130227
  Transmission Date: 20140127
  Serious: Yes (Hospitalization, Other)
  Sender: FDA-Public Use
  Company Number: PHHO2009DE05641

PATIENT
  Age: 45 Year
  Sex: Female
  Weight: 60 kg

DRUGS (2)
  1. FTY [Suspect]
     Indication: MULTIPLE SCLEROSIS
     Dosage: 30 UG, QW
     Route: 048
     Dates: start: 20080612, end: 20081209
  2. L-THYROXINE [Concomitant]
     Indication: HYPOTHYROIDISM

REACTIONS (9)
  - Inflammation [Unknown]
  - Pain [Unknown]
  - Muscle spasticity [Unknown]
  - Idiopathic thrombocytopenic purpura [Recovered/Resolved]
  - Contusion [Recovered/Resolved]
  - Platelet count abnormal [Recovered/Resolved]
  - Haematoma [Recovered/Resolved]
  - Menorrhagia [Recovered/Resolved]
  - Multiple sclerosis [Unknown]
